FAERS Safety Report 8622599-1 (Version None)
Quarter: 2012Q3

REPORT INFORMATION
  Report Type: 
  Country: None (occurrence: None)
  Receive Date: 20120810
  Receipt Date: 20120727
  Transmission Date: 20120928
  Serious: Yes (Hospitalization)
  Sender: FDA-Public Use
  Company Number: 1370990

PATIENT
  Age: 8 Year
  Sex: Male

DRUGS (6)
  1. TOPIRAMATE [Suspect]
     Indication: CONVULSION
  2. VALPROIC ACID [Suspect]
     Indication: CONVULSION
  3. CARBAMAZEPINE [Suspect]
     Indication: CONVULSION
  4. LORAZEPAM [Suspect]
     Indication: CONVULSION
  5. CLOBAZAM [Suspect]
     Indication: CONVULSION
  6. AMOXICILLIN [Suspect]
     Indication: OTITIS MEDIA

REACTIONS (4)
  - INAPPROPRIATE ANTIDIURETIC HORMONE SECRETION [None]
  - HYPERTENSION [None]
  - POST STREPTOCOCCAL GLOMERULONEPHRITIS [None]
  - PORPHYRIA ACUTE [None]
